FAERS Safety Report 9640816 (Version 1)
Quarter: 2013Q4

REPORT INFORMATION
  Report Type: Spontaneous
  Country: US (occurrence: None)
  Receive Date: 20131022
  Receipt Date: 20131022
  Transmission Date: 20140711
  Serious: No
  Sender: FDA-Public Use
  Company Number: None

PATIENT
  Age: 58 Year
  Sex: Female

DRUGS (1)
  1. TECFIDERA [Suspect]
     Route: 048
     Dates: start: 20130730, end: 20130910

REACTIONS (8)
  - Nausea [None]
  - Pruritus [None]
  - Rash [None]
  - Flushing [None]
  - Feeling hot [None]
  - Diarrhoea [None]
  - Skin haemorrhage [None]
  - Scratch [None]
